FAERS Safety Report 16206126 (Version 1)
Quarter: 2019Q2

REPORT INFORMATION
  Report Type: Spontaneous
  Country: US (occurrence: US)
  Receive Date: 20190417
  Receipt Date: 20190417
  Transmission Date: 20190711
  Serious: Yes (Life-Threatening, Hospitalization)
  Sender: FDA-Public Use
  Company Number: US-TEVA-2019-US-1038549

PATIENT
  Age: 61 Year
  Sex: Male
  Weight: 139.9 kg

DRUGS (2)
  1. ASPIRIN. [Suspect]
     Active Substance: ASPIRIN
     Route: 065
  2. ENOXAPARIN [Suspect]
     Active Substance: ENOXAPARIN
     Indication: ANTICOAGULANT THERAPY
     Dosage: 140 UNITS TWICE DAILY
     Route: 065

REACTIONS (3)
  - Anaemia [Unknown]
  - Abdominal wall haematoma [Recovering/Resolving]
  - Hypovolaemic shock [Unknown]
